FAERS Safety Report 21511945 (Version 2)
Quarter: 2022Q4

REPORT INFORMATION
  Report Type: Other
  Country: CA (occurrence: None)
  Receive Date: 20221027
  Receipt Date: 20221212
  Transmission Date: 20230112
  Serious: Yes (Hospitalization)
  Sender: FDA-Public Use
  Company Number: CA-ROCHE-3205584

PATIENT
  Sex: Female

DRUGS (3)
  1. OCREVUS [Suspect]
     Active Substance: OCRELIZUMAB
     Indication: Primary progressive multiple sclerosis
     Dosage: 300 MG AT DAY 0 AND 14, THEN 600 MG EVERY 6 MONTH
     Route: 042
     Dates: start: 20210320
  2. GABAPENTIN [Concomitant]
     Active Substance: GABAPENTIN
     Dosage: MORE DOSAGE INFORMATION IS 600MG DAYS 3 1
  3. PFIZER-BIONTECH COVID-19 VACCINE [Concomitant]
     Active Substance: TOZINAMERAN
     Dosage: 2 OF THE INITIAL ONES AND ONE BOOSTER BACK IN /JAN/2022

REACTIONS (4)
  - SARS-CoV-2 test positive [Unknown]
  - Headache [Unknown]
  - Aphonia [Unknown]
  - Oropharyngeal pain [Unknown]
